FAERS Safety Report 9334369 (Version 2)
Quarter: 2013Q2

REPORT INFORMATION
  Report Type: Spontaneous
  Country: DE (occurrence: DE)
  Receive Date: 20130606
  Receipt Date: 20130626
  Transmission Date: 20140414
  Serious: Yes (Hospitalization)
  Sender: FDA-Public Use
  Company Number: DE-EISAI INC-E2007-01199-SPO-DE

PATIENT
  Age: 15 Year
  Sex: Female
  Weight: 74 kg

DRUGS (4)
  1. FYCOMPA (PERAMPANEL) [Suspect]
     Indication: PARTIAL SEIZURES
     Dosage: UNKNOWN
     Route: 048
     Dates: start: 20130419, end: 20130509
  2. FYCOMPA (PERAMPANEL) [Suspect]
     Route: 048
     Dates: start: 20130510, end: 20130517
  3. KEPPRA [Concomitant]
     Indication: PARTIAL SEIZURES
     Dosage: 2500 MG DAILY
     Route: 048
     Dates: start: 201112
  4. TOPAMAX [Concomitant]
     Indication: PARTIAL SEIZURES
     Dosage: 300 MG DAILY
     Route: 048
     Dates: start: 2012

REACTIONS (1)
  - Psychotic disorder [Recovered/Resolved]
